FAERS Safety Report 16057993 (Version 1)
Quarter: 2019Q1

REPORT INFORMATION
  Report Type: Spontaneous
  Country: FI (occurrence: FI)
  Receive Date: 20190311
  Receipt Date: 20190311
  Transmission Date: 20190418
  Serious: Yes (Other)
  Sender: FDA-Public Use
  Company Number: FI-AMGEN-FINSP2019030844

PATIENT
  Age: 70 Year
  Sex: Female

DRUGS (3)
  1. ENBREL [Suspect]
     Active Substance: ETANERCEPT
     Indication: RHEUMATOID ARTHRITIS
     Dosage: UNK (FIRST INJECTION)
     Route: 065
     Dates: start: 20190121
  2. ENBREL [Suspect]
     Active Substance: ETANERCEPT
     Dosage: UNK (SECOND INJECTION)
     Route: 065
     Dates: start: 20190128
  3. ENBREL [Suspect]
     Active Substance: ETANERCEPT
     Dosage: UNK (THIRD INJECTION)
     Route: 065
     Dates: start: 20190205

REACTIONS (16)
  - Malaise [Recovered/Resolved]
  - Chills [Recovered/Resolved]
  - Cardiac discomfort [Recovered/Resolved]
  - Paraesthesia [Recovered/Resolved]
  - Hypertension [Recovered/Resolved]
  - Hypoaesthesia [Recovered/Resolved]
  - Diarrhoea [Recovered/Resolved]
  - Chest pain [Recovered/Resolved]
  - Fatigue [Recovered/Resolved]
  - Scleral discolouration [Recovered/Resolved]
  - Asthenia [Recovered/Resolved]
  - Headache [Recovered/Resolved]
  - Injection site discolouration [Recovered/Resolved]
  - Abdominal pain upper [Recovered/Resolved]
  - Injection site rash [Recovered/Resolved]
  - Bladder pain [Recovered/Resolved]

NARRATIVE: CASE EVENT DATE: 20190208
